FAERS Safety Report 4600495-4 (Version None)
Quarter: 2005Q1

REPORT INFORMATION
  Report Type: 
  Country: None (occurrence: None)
  Receive Date: 20050304
  Receipt Date: 20050222
  Transmission Date: 20050727
  Serious: Yes (Hospitalization, Other)
  Sender: FDA-Public Use
  Company Number: 2004110678

PATIENT
  Age: 75 Year
  Sex: Female
  Weight: 86.1834 kg

DRUGS (2)
  1. CELEBREX [Suspect]
     Indication: ARTHRITIS
     Dosage: 200 MG (100 MG, 2 IN 1 D)
  2. ROFECOXIB [Suspect]
     Indication: ARTHRITIS

REACTIONS (10)
  - ABDOMINAL PAIN UPPER [None]
  - AMNESIA [None]
  - CORONARY ARTERY OCCLUSION [None]
  - COUGH [None]
  - FATIGUE [None]
  - FOOT FRACTURE [None]
  - INCISION SITE COMPLICATION [None]
  - MYOCARDIAL INFARCTION [None]
  - OEDEMA PERIPHERAL [None]
  - POST PROCEDURAL COMPLICATION [None]
